FAERS Safety Report 23896444 (Version 3)
Quarter: 2024Q2

REPORT INFORMATION
  Report Type: Spontaneous
  Country: JP (occurrence: None)
  Receive Date: 20240524
  Receipt Date: 20240604
  Transmission Date: 20240716
  Serious: Yes (Life-Threatening, Other)
  Sender: FDA-Public Use
  Company Number: 2024A119432

PATIENT
  Age: 80 Year
  Sex: Female

DRUGS (5)
  1. TEZSPIRE [Suspect]
     Active Substance: TEZEPELUMAB-EKKO
     Indication: Asthma
     Dosage: DOSE UNKNOWN
     Route: 058
     Dates: start: 20240521
  2. DABIGATRAN ETEXILATE MESYLATE [Concomitant]
     Active Substance: DABIGATRAN ETEXILATE MESYLATE
  3. AMLODIPINE [Concomitant]
     Active Substance: AMLODIPINE BESYLATE
  4. CANDESARTAN [Concomitant]
     Active Substance: CANDESARTAN
  5. UNSPECIFIED INGREDIENT [Concomitant]
     Active Substance: UNSPECIFIED INGREDIENT
     Dosage: CHRONIC USE
     Route: 048

REACTIONS (3)
  - Cardiac arrest [Recovered/Resolved]
  - Arteriospasm coronary [Recovered/Resolved]
  - Coronary artery stenosis [Recovered/Resolved]

NARRATIVE: CASE EVENT DATE: 20240521
